FAERS Safety Report 4672900-9 (Version None)
Quarter: 2005Q2

REPORT INFORMATION
  Report Type: 
  Country: None (occurrence: None)
  Receive Date: 20050523
  Receipt Date: 20050509
  Transmission Date: 20051028
  Serious: Yes (Hospitalization, Disabling)
  Sender: FDA-Public Use
  Company Number: HQWYE638523NOV04

PATIENT
  Age: 46 Year
  Sex: Male

DRUGS (4)
  1. DIMETAPP (BROMPHENIRAMINE/PHENYLPROPANOLAMINE, EXTETAB) [Suspect]
     Indication: NASOPHARYNGITIS
     Dosage: ORAL
     Route: 048
  2. CONTAC 12 HOURS (CHLORPHENAMINE MALEATE/PHENYLPROPANOLAMINE HYDROCHLOR [Suspect]
     Indication: HYPERSENSITIVITY
     Dosage: ORAL
     Route: 048
  3. CONTAC 12 HOURS (CHLORPHENAMINE MALEATE/PHENYLPROPANOLAMINE HYDROCHLOR [Suspect]
     Indication: NASOPHARYNGITIS
     Dosage: ORAL
     Route: 048
  4. LORTAB [Concomitant]

REACTIONS (1)
  - CEREBROVASCULAR ACCIDENT [None]
